FAERS Safety Report 14741772 (Version 2)
Quarter: 2018Q3

REPORT INFORMATION
  Report Type: Spontaneous
  Country: SE (occurrence: SE)
  Receive Date: 20180410
  Receipt Date: 20180704
  Transmission Date: 20181010
  Serious: Yes (Other)
  Sender: FDA-Public Use
  Company Number: SE-ASTRAZENECA-2018SE42318

PATIENT
  Age: 79 Year
  Sex: Female

DRUGS (5)
  1. ARTHROTEC FORTE [Suspect]
     Active Substance: DICLOFENAC SODIUM\MISOPROSTOL
     Indication: ARTHRALGIA
     Route: 048
  2. ARTHROTEC FORTE [Suspect]
     Active Substance: DICLOFENAC SODIUM\MISOPROSTOL
     Indication: OSTEOARTHRITIS
     Dosage: UNK
     Route: 048
     Dates: start: 2013
  3. ARTHROTEC FORTE [Suspect]
     Active Substance: DICLOFENAC SODIUM\MISOPROSTOL
     Indication: ARTHRALGIA
     Dosage: UNK
     Route: 048
     Dates: start: 2013
  4. CRESTOR [Suspect]
     Active Substance: ROSUVASTATIN CALCIUM
     Indication: BLOOD CHOLESTEROL ABNORMAL
     Dosage: UNK
     Route: 048
  5. ARTHROTEC FORTE [Suspect]
     Active Substance: DICLOFENAC SODIUM\MISOPROSTOL
     Indication: OSTEOARTHRITIS
     Route: 048

REACTIONS (5)
  - Chest discomfort [Not Recovered/Not Resolved]
  - Rash pruritic [Not Recovered/Not Resolved]
  - Fatigue [Not Recovered/Not Resolved]
  - Exercise tolerance decreased [Not Recovered/Not Resolved]
  - Respiratory distress [Not Recovered/Not Resolved]
